FAERS Safety Report 4368226-3 (Version None)
Quarter: 2004Q2

REPORT INFORMATION
  Report Type: 
  Country: None (occurrence: None)
  Receive Date: 20040527
  Receipt Date: 20040514
  Transmission Date: 20050107
  Serious: Yes (Life-Threatening, Hospitalization)
  Sender: FDA-Public Use
  Company Number: A01200401247

PATIENT
  Age: 83 Year
  Sex: Female

DRUGS (6)
  1. PLAVIX [Suspect]
     Indication: TRANSIENT ISCHAEMIC ATTACK
     Dosage: 75 MG QD ORAL
     Route: 048
     Dates: start: 20030406, end: 20031231
  2. TRIATEC - RAMIPRIL - TABLET - 1 UNIT [Suspect]
     Indication: HYPERTENSION
     Dosage: 1 UNIT QD ORAL
     Route: 048
     Dates: start: 19991201, end: 20031231
  3. ALDALIX (FUROSEMIDE + SPIRONOLACTONE) [Concomitant]
  4. CORDARONE [Concomitant]
  5. LEVOTHYROX (LEVOTHYROXINE SODIUM) [Concomitant]
  6. LEXOMIL (BROMAZEPAM) [Concomitant]

REACTIONS (11)
  - ANAEMIA [None]
  - ARRHYTHMIA [None]
  - CARDIAC ARREST [None]
  - DECREASED APPETITE [None]
  - DISEASE RECURRENCE [None]
  - ESCHERICHIA URINARY TRACT INFECTION [None]
  - HELICOBACTER GASTRITIS [None]
  - INFLAMMATION [None]
  - POLYARTERITIS NODOSA [None]
  - PURPURA [None]
  - RENAL FAILURE [None]
